FAERS Safety Report 20741495 (Version 1)
Quarter: 2022Q2

REPORT INFORMATION
  Report Type: Report from Study
  Country: BR (occurrence: BR)
  Receive Date: 20220422
  Receipt Date: 20220422
  Transmission Date: 20220720
  Serious: Yes (Hospitalization)
  Sender: FDA-Public Use
  Company Number: BR-AMGEN-BRASL2022064797

PATIENT
  Age: 69 Year
  Sex: Female

DRUGS (1)
  1. VECTIBIX [Suspect]
     Active Substance: PANITUMUMAB
     Indication: Gastrointestinal carcinoma
     Dosage: UNK EVERY 15 DAYS
     Route: 042
     Dates: start: 20211227

REACTIONS (3)
  - Sensitive skin [Recovered/Resolved]
  - Adverse drug reaction [Recovered/Resolved]
  - Pain of skin [Recovered/Resolved]

NARRATIVE: CASE EVENT DATE: 20220401
